FAERS Safety Report 10564461 (Version 1)
Quarter: 2014Q4

REPORT INFORMATION
  Report Type: Report from Study
  Country: ES (occurrence: ES)
  Receive Date: 20141104
  Receipt Date: 20141104
  Transmission Date: 20150529
  Serious: Yes (Hospitalization, Other)
  Sender: FDA-Public Use
  Company Number: ES-GILEAD-2014-0120417

PATIENT
  Age: 48 Year
  Sex: Male

DRUGS (3)
  1. RIBAVIRIN. [Suspect]
     Active Substance: RIBAVIRIN
     Indication: HEPATITIS C
     Dosage: UNK
     Route: 048
     Dates: start: 20140205, end: 20140725
  2. PEG /01543001/ [Suspect]
     Active Substance: PEGINTERFERON ALFA-2B
     Indication: HEPATITIS C
     Dosage: UNK
     Dates: start: 20140205, end: 20140725
  3. SOFOSBUVIR [Suspect]
     Active Substance: SOFOSBUVIR
     Indication: HEPATITIS C
     Dosage: UNK
     Route: 048
     Dates: start: 20140205, end: 20140725

REACTIONS (6)
  - Renal failure [Unknown]
  - Hepatic encephalopathy [None]
  - General physical health deterioration [None]
  - Fluid retention [Unknown]
  - Ascites [Unknown]
  - Viral load increased [Unknown]

NARRATIVE: CASE EVENT DATE: 20140729
